FAERS Safety Report 4781221-5 (Version None)
Quarter: 2005Q3

REPORT INFORMATION
  Report Type: 
  Country: None (occurrence: None)
  Receive Date: 20050928
  Receipt Date: 20050922
  Transmission Date: 20060218
  Serious: Yes (Life-Threatening)
  Sender: FDA-Public Use
  Company Number: 200518369GDDC

PATIENT
  Age: 29 Year
  Sex: Female

DRUGS (1)
  1. FEXOFENADINE HCL [Suspect]
     Indication: HYPERSENSITIVITY
     Route: 048
     Dates: start: 20050801, end: 20050804

REACTIONS (1)
  - DEPRESSION SUICIDAL [None]
